FAERS Safety Report 9791376 (Version 2)
Quarter: 2014Q1

REPORT INFORMATION
  Report Type: Spontaneous
  Country: US (occurrence: US)
  Receive Date: 20140101
  Receipt Date: 20140102
  Transmission Date: 20141002
  Serious: No
  Sender: FDA-Public Use
  Company Number: US-009507513-1312USA012104

PATIENT
  Age: 57 Year
  Sex: Female

DRUGS (3)
  1. NASONEX [Suspect]
     Indication: UPPER RESPIRATORY TRACT INFECTION BACTERIAL
     Dosage: 2 SPRAYS PER NOSTRIL
     Route: 045
     Dates: start: 20131226
  2. MUCINEX [Concomitant]
     Dosage: UNK
  3. LORATADINE [Concomitant]
     Dosage: UNK

REACTIONS (1)
  - Nasal discomfort [Recovering/Resolving]
